FAERS Safety Report 21195630 (Version 1)
Quarter: 2022Q3

REPORT INFORMATION
  Report Type: Spontaneous
  Country: US (occurrence: US)
  Receive Date: 20220810
  Receipt Date: 20220810
  Transmission Date: 20221026
  Serious: No
  Sender: FDA-Public Use
  Company Number: US-BRISTOL-MYERS SQUIBB COMPANY-2022-086666

PATIENT
  Sex: Female

DRUGS (1)
  1. HYDREA [Suspect]
     Active Substance: HYDROXYUREA
     Indication: Polycythaemia
     Dosage: DOSE : UNAVAILABLE;     FREQ : 80MG (0.3ML) SOLUTION EVERY OTHER DAY
     Route: 048

REACTIONS (1)
  - Intentional product use issue [Unknown]
